FAERS Safety Report 23765029 (Version 1)
Quarter: 2024Q2

REPORT INFORMATION
  Report Type: Spontaneous
  Country: US (occurrence: US)
  Receive Date: 20240420
  Receipt Date: 20240420
  Transmission Date: 20240716
  Serious: No
  Sender: FDA-Public Use
  Company Number: US-AMGEN-USASP2024078835

PATIENT
  Sex: Female
  Weight: 53.7 kg

DRUGS (1)
  1. NPLATE [Suspect]
     Active Substance: ROMIPLOSTIM
     Indication: Immune thrombocytopenia
     Dosage: UNK (DOSE ORDERED:  152 MCG), DOSE REQUESTED:  250 MCG
     Route: 065

REACTIONS (1)
  - Ill-defined disorder [Unknown]
